FAERS Safety Report 24200428 (Version 1)
Quarter: 2024Q3

REPORT INFORMATION
  Report Type: Spontaneous
  Country: US (occurrence: US)
  Receive Date: 20240812
  Receipt Date: 20240812
  Transmission Date: 20241016
  Serious: No
  Sender: MELINTA THERAPEUTICS
  Company Number: US-MELINTA THERAPEUTICS, LLC-US-MLNT-23-00398

PATIENT
  Sex: Female

DRUGS (7)
  1. BAXDELA [Suspect]
     Active Substance: DELAFLOXACIN MEGLUMINE
     Indication: Product used for unknown indication
     Dosage: 450 MILLIGRAM, BID
     Route: 048
     Dates: start: 20230621
  2. NURTEC ODT [Concomitant]
     Active Substance: RIMEGEPANT SULFATE
     Indication: Product used for unknown indication
  3. PANTOPRAZOLE [Concomitant]
     Active Substance: PANTOPRAZOLE
     Indication: Product used for unknown indication
     Dosage: UNK
  4. PAXIL CR [Concomitant]
     Active Substance: PAROXETINE HYDROCHLORIDE
     Indication: Product used for unknown indication
  5. SENNA [Concomitant]
     Active Substance: SENNA LEAF\SENNOSIDES\SENNOSIDES A AND B
     Indication: Product used for unknown indication
  6. TIZANIDINE [Concomitant]
     Active Substance: TIZANIDINE
     Indication: Product used for unknown indication
  7. TRAMADOL [Concomitant]
     Active Substance: TRAMADOL\TRAMADOL HYDROCHLORIDE
     Indication: Product used for unknown indication
     Dosage: UNK

REACTIONS (1)
  - Diarrhoea [Unknown]
